FAERS Safety Report 6130028-5 (Version None)
Quarter: 2009Q1

REPORT INFORMATION
  Report Type: 
  Country: None (occurrence: None)
  Receive Date: 20090323
  Receipt Date: 20090323
  Transmission Date: 20090719
  Serious: Yes (Death, Life-Threatening, Hospitalization)
  Sender: FDA-Public Use
  Company Number: None

PATIENT
  Age: 47 Year
  Sex: Male
  Weight: 199.5827 kg

DRUGS (2)
  1. BYETTA [Suspect]
     Indication: DIABETES MELLITUS
     Dosage: 5MG TWICE DAILY SQ
     Dates: start: 20070515, end: 20070615
  2. BYETTA [Suspect]
     Dosage: 10MG TWICE DAILY SQ
     Dates: start: 20070616, end: 20070907

REACTIONS (2)
  - BLOOD GLUCOSE INCREASED [None]
  - PANCREATITIS HAEMORRHAGIC [None]
